FAERS Safety Report 6989032-7 (Version None)
Quarter: 2010Q3

REPORT INFORMATION
  Report Type: 
  Country: None (occurrence: None)
  Receive Date: 20100916
  Receipt Date: 20090903
  Transmission Date: 20110219
  Serious: Yes (Other)
  Sender: FDA-Public Use
  Company Number: US-PFIZER INC-2009247475

PATIENT
  Sex: Male
  Weight: 74.83 kg

DRUGS (5)
  1. NEURONTIN [Suspect]
     Indication: FIBROMYALGIA
     Dosage: UNK
     Dates: start: 20040101, end: 20050101
  2. NEURONTIN [Suspect]
     Indication: NERVE INJURY
  3. NEURONTIN [Suspect]
     Indication: NEURALGIA
  4. LYRICA [Suspect]
     Indication: FIBROMYALGIA
     Dosage: UNK
     Dates: start: 20060101
  5. LYRICA [Suspect]
     Indication: NERVE INJURY

REACTIONS (1)
  - PULMONARY THROMBOSIS [None]
